FAERS Safety Report 16473489 (Version 1)
Quarter: 2019Q2

REPORT INFORMATION
  Report Type: Spontaneous
  Country: IN (occurrence: IN)
  Receive Date: 20190625
  Receipt Date: 20190625
  Transmission Date: 20190711
  Serious: Yes (Hospitalization, Other)
  Sender: FDA-Public Use
  Company Number: IN-AUROBINDO-AUR-APL-2019-035791

PATIENT

DRUGS (3)
  1. TENOFOVIR+LAMIVUDINE+EFAVIRENZ [Suspect]
     Active Substance: EFAVIRENZ\LAMIVUDINE\TENOFOVIR DISOPROXIL FUMARATE
     Indication: HIV INFECTION
     Dosage: UNK
     Route: 065
  2. COTRIMOXAZOLE [Concomitant]
     Active Substance: SULFAMETHOXAZOLE\TRIMETHOPRIM
     Dosage: DOUBLE THE STRENGTH
     Route: 048
  3. COTRIMOXAZOLE [Concomitant]
     Active Substance: SULFAMETHOXAZOLE\TRIMETHOPRIM
     Indication: PROPHYLAXIS
     Dosage: UNK UNK, DAILY
     Route: 048

REACTIONS (28)
  - Dysphagia [Recovered/Resolved]
  - Odynophagia [Recovered/Resolved]
  - HIV infection CDC group IV [Recovered/Resolved]
  - Visceral leishmaniasis [Recovered/Resolved]
  - Pallor [Recovered/Resolved]
  - Pneumocystis jirovecii pneumonia [Recovered/Resolved]
  - Asthenia [Recovered/Resolved]
  - Oesophageal candidiasis [Recovered/Resolved]
  - Hepatosplenomegaly [Not Recovered/Not Resolved]
  - Vomiting [Recovered/Resolved]
  - Leishmaniasis [Recovered/Resolved]
  - Cough [Recovered/Resolved]
  - Tachypnoea [Unknown]
  - Respiratory failure [Recovered/Resolved]
  - Immune reconstitution inflammatory syndrome [Recovered/Resolved]
  - Pyrexia [Recovered/Resolved]
  - Tachycardia [Recovered/Resolved]
  - CD4 lymphocytes decreased [Recovered/Resolved]
  - Pancytopenia [Recovered/Resolved]
  - Weight decreased [Recovered/Resolved]
  - Early satiety [Recovered/Resolved]
  - Productive cough [Recovered/Resolved]
  - Blood HIV RNA decreased [Recovered/Resolved]
  - Lymphadenopathy [Recovered/Resolved]
  - Abdominal pain [Recovered/Resolved]
  - Decreased appetite [Recovered/Resolved]
  - Dyspnoea [Recovered/Resolved]
  - Haemoglobin decreased [Recovered/Resolved]
